FAERS Safety Report 4558625-9 (Version None)
Quarter: 2005Q1

REPORT INFORMATION
  Report Type: 
  Country: None (occurrence: None)
  Receive Date: 20050119
  Receipt Date: 20050106
  Transmission Date: 20050727
  Serious: Yes (Other)
  Sender: FDA-Public Use
  Company Number: 2004078403

PATIENT
  Age: 83 Year
  Sex: Male
  Weight: 113.3993 kg

DRUGS (12)
  1. NEURONTIN [Suspect]
     Indication: NEURALGIA
     Dosage: 1200 MG (400 MG, 3 IN 1 D)
     Dates: start: 20010213
  2. NEURONTIN [Suspect]
     Indication: NEUROPATHIC PAIN
     Dosage: 1200 MG (400 MG, 3 IN 1 D)
     Dates: start: 20010213
  3. ATENOLOL [Concomitant]
  4. RANITIDINE HYDROCHLORIDE [Concomitant]
  5. DIAZEPAM [Concomitant]
  6. CENTRUM SILVER (ASCORBIC ACID, CALCIUM, MINERALS NOS, RETINOL, TOCOPHE [Concomitant]
  7. TOCOPHEROL (TOCOPHEROL) [Concomitant]
  8. IRBESARTAN [Concomitant]
  9. HYDROCHLOROTHIAZIDE [Concomitant]
  10. CLOPIDOGREL BISULFATE [Concomitant]
  11. VICODIN [Concomitant]
  12. ACETAMINOPHEN [Concomitant]

REACTIONS (4)
  - TENDON REPAIR [None]
  - URINARY INCONTINENCE [None]
  - URINARY RETENTION [None]
  - URINARY TRACT INFECTION [None]
